FAERS Safety Report 18410558 (Version 3)
Quarter: 2021Q1

REPORT INFORMATION
  Report Type: Spontaneous
  Country: US (occurrence: US)
  Receive Date: 20201021
  Receipt Date: 20210126
  Transmission Date: 20210419
  Serious: Yes (Death, Hospitalization, Other)
  Sender: FDA-Public Use
  Company Number: US-HIKMA PHARMACEUTICALS USA INC.-US-H14001-20-04781

PATIENT
  Age: 72 Year
  Sex: Female

DRUGS (9)
  1. NIVOLUMAB [Suspect]
     Active Substance: NIVOLUMAB
     Indication: METASTASES TO PERITONEUM
  2. NIVOLUMAB [Suspect]
     Active Substance: NIVOLUMAB
     Indication: GALLBLADDER CANCER METASTATIC
     Route: 042
     Dates: start: 20200915, end: 20200929
  3. FLUOROURACIL. [Suspect]
     Active Substance: FLUOROURACIL
     Indication: GALLBLADDER CANCER METASTATIC
     Route: 042
     Dates: start: 20200915, end: 20200929
  4. LEUCOVORIN. [Suspect]
     Active Substance: LEUCOVORIN
     Indication: METASTASES TO PERITONEUM
  5. ONIVYDE [Suspect]
     Active Substance: IRINOTECAN HYDROCHLORIDE
     Indication: GALLBLADDER CANCER METASTATIC
     Route: 042
     Dates: start: 20200915, end: 20200929
  6. ONIVYDE [Suspect]
     Active Substance: IRINOTECAN HYDROCHLORIDE
     Indication: METASTASES TO PERITONEUM
  7. LEUCOVORIN. [Suspect]
     Active Substance: LEUCOVORIN
     Indication: GALLBLADDER CANCER METASTATIC
     Route: 042
     Dates: start: 20200915, end: 20200929
  8. VANCOMYCIN [Concomitant]
     Active Substance: VANCOMYCIN
     Indication: CLOSTRIDIUM DIFFICILE INFECTION
     Dosage: UNKNOWN
     Route: 048
  9. FLUOROURACIL. [Suspect]
     Active Substance: FLUOROURACIL
     Indication: METASTASES TO PERITONEUM

REACTIONS (9)
  - Pneumonia [Recovered/Resolved]
  - Diarrhoea [Not Recovered/Not Resolved]
  - Nausea [Unknown]
  - Campylobacter infection [Not Recovered/Not Resolved]
  - Blood potassium decreased [Unknown]
  - Electrolyte imbalance [Unknown]
  - Enterocolitis infectious [Not Recovered/Not Resolved]
  - Clostridium difficile infection [Not Recovered/Not Resolved]
  - Decreased appetite [Unknown]

NARRATIVE: CASE EVENT DATE: 20201003
